FAERS Safety Report 7343264-7 (Version None)
Quarter: 2011Q1

REPORT INFORMATION
  Report Type: 
  Country: None (occurrence: None)
  Receive Date: 20110310
  Receipt Date: 20110225
  Transmission Date: 20110831
  Serious: Yes (Other)
  Sender: FDA-Public Use
  Company Number: US-SANOFI-AVENTIS-2011SA003866

PATIENT
  Age: 68 Year
  Sex: Female
  Weight: 76 kg

DRUGS (2)
  1. MULTAQ [Suspect]
     Indication: ATRIAL FIBRILLATION
     Route: 048
     Dates: start: 20090701, end: 20100127
  2. LOZOL [Concomitant]

REACTIONS (5)
  - ASTHENIA [None]
  - ATRIAL FIBRILLATION [None]
  - OXYGEN SATURATION DECREASED [None]
  - OEDEMA PERIPHERAL [None]
  - WEIGHT INCREASED [None]
